FAERS Safety Report 21089588 (Version 2)
Quarter: 2022Q4

REPORT INFORMATION
  Report Type: Report from Study
  Country: MD (occurrence: None)
  Receive Date: 20220715
  Receipt Date: 20221006
  Transmission Date: 20230113
  Serious: Yes (Life-Threatening, Hospitalization)
  Sender: FDA-Public Use
  Company Number: MD-ROCHE-3137825

PATIENT
  Age: 59 Year
  Sex: Male
  Weight: 72.8 kg

DRUGS (10)
  1. ATEZOLIZUMAB [Suspect]
     Active Substance: ATEZOLIZUMAB
     Indication: Prostate cancer metastatic
     Dosage: MOST RECENT DOSE OF STUDY DRUG PRIOR TO AE 1200 MG
     Route: 041
     Dates: start: 20220119
  2. TIRAGOLUMAB [Suspect]
     Active Substance: TIRAGOLUMAB
     Indication: Prostate cancer metastatic
     Dosage: MOST RECENT DOSE OF STUDY DRUG PRIOR TO SAE/AE 600 MG
     Route: 042
     Dates: start: 20220119
  3. ATEZOLIZUMAB [Suspect]
     Active Substance: ATEZOLIZUMAB
     Indication: Prostate cancer metastatic
     Dosage: MOST RECENT DOSE OF STUDY DRUG PRIOR TO AE 08/DEC/2021 AE:1649.31 MG, SAE:564.24 MG
     Route: 058
     Dates: start: 20211208
  4. TIRAGOLUMAB [Suspect]
     Active Substance: TIRAGOLUMAB
     Indication: Prostate cancer metastatic
     Dosage: MOST RECENT DOSE OF STUDY DRUG PRIOR TO AE/SAE  928.89 MG
     Route: 058
     Dates: start: 20211208
  5. METFORMIN [Concomitant]
     Active Substance: METFORMIN HYDROCHLORIDE
     Indication: Type 2 diabetes mellitus
     Route: 048
     Dates: start: 201505
  6. DEXKETOPROFEN [Concomitant]
     Active Substance: DEXKETOPROFEN
     Indication: Back pain
     Route: 030
     Dates: start: 20211010
  7. DEXAMETHASONE [Concomitant]
     Active Substance: DEXAMETHASONE
     Indication: Acute kidney injury
     Route: 042
     Dates: start: 20220207, end: 20220222
  8. FUROSEMIDE [Concomitant]
     Active Substance: FUROSEMIDE
     Indication: Acute kidney injury
     Route: 048
     Dates: start: 20220222
  9. FUROSEMIDE [Concomitant]
     Active Substance: FUROSEMIDE
     Route: 042
     Dates: start: 20220211, end: 20220216
  10. FUROSEMIDE [Concomitant]
     Active Substance: FUROSEMIDE
     Route: 042
     Dates: start: 20220208, end: 20220210

REACTIONS (1)
  - Acute kidney injury [Recovered/Resolved]

NARRATIVE: CASE EVENT DATE: 20220207
